FAERS Safety Report 7528610-3 (Version None)
Quarter: 2011Q2

REPORT INFORMATION
  Report Type: 
  Country: None (occurrence: None)
  Receive Date: 20110531
  Receipt Date: 20110516
  Transmission Date: 20111010
  Serious: Yes (Death, Life-Threatening, Hospitalization)
  Sender: FDA-Public Use
  Company Number: 2011MA005978

PATIENT
  Age: 81 Year
  Sex: Male

DRUGS (3)
  1. IRINOTECAN HCL [Suspect]
     Indication: SMALL CELL LUNG CANCER STAGE UNSPECIFIED
  2. ETOPOSIDE [Concomitant]
  3. CISPLATIN [Concomitant]

REACTIONS (5)
  - PULMONARY FIBROSIS [None]
  - PNEUMONITIS [None]
  - RESPIRATORY FAILURE [None]
  - PULMONARY TOXICITY [None]
  - DIFFUSE ALVEOLAR DAMAGE [None]
